FAERS Safety Report 7941107-1 (Version None)
Quarter: 2011Q4

REPORT INFORMATION
  Report Type: 
  Country: None (occurrence: None)
  Receive Date: 20111128
  Receipt Date: 20111118
  Transmission Date: 20120403
  Serious: Yes (Hospitalization)
  Sender: FDA-Public Use
  Company Number: ES-JNJFOC-20111108428

PATIENT
  Age: 71 Year
  Sex: Male

DRUGS (2)
  1. NEO TOMIZOL [Concomitant]
     Indication: HYPERTHYROIDISM
     Route: 065
  2. LEVOFLOXACIN [Suspect]
     Indication: PNEUMONIA
     Route: 048
     Dates: start: 20040405, end: 20040414

REACTIONS (2)
  - HYPOKALAEMIA [None]
  - DIARRHOEA [None]
